FAERS Safety Report 12922833 (Version 1)
Quarter: 2016Q4

REPORT INFORMATION
  Report Type: Spontaneous
  Country: JP (occurrence: JP)
  Receive Date: 20161109
  Receipt Date: 20161109
  Transmission Date: 20170207
  Serious: Yes (Other)
  Sender: FDA-Public Use
  Company Number: JP-ROCHE-1851704

PATIENT
  Age: 85 Year
  Sex: Male

DRUGS (4)
  1. MAQAID [Suspect]
     Active Substance: TRIAMCINOLONE ACETONIDE
     Indication: VENOUS OCCLUSION
     Route: 065
  2. LUCENTIS [Suspect]
     Active Substance: RANIBIZUMAB
     Indication: AGE-RELATED MACULAR DEGENERATION
     Dosage: UNK
     Route: 031
     Dates: start: 20130116
  3. LUCENTIS [Suspect]
     Active Substance: RANIBIZUMAB
     Dosage: UNK
     Route: 031
     Dates: start: 20130124
  4. VISUDYNE [Suspect]
     Active Substance: VERTEPORFIN
     Indication: AGE-RELATED MACULAR DEGENERATION
     Dosage: UNK
     Route: 042

REACTIONS (3)
  - Cerebral infarction [Unknown]
  - Pleural effusion [None]
  - Lung neoplasm malignant [Unknown]

NARRATIVE: CASE EVENT DATE: 20150716
